FAERS Safety Report 4972236-2 (Version None)
Quarter: 2006Q2

REPORT INFORMATION
  Report Type: 
  Country: None (occurrence: None)
  Receive Date: 20060413
  Receipt Date: 20060407
  Transmission Date: 20061013
  Serious: Yes (Hospitalization)
  Sender: FDA-Public Use
  Company Number: DG:300306-1

PATIENT
  Age: 66 Year
  Sex: Male

DRUGS (6)
  1. LITHIUM CARBONATE [Suspect]
     Dosage: 250MG THREE TIMES PER DAY
     Route: 048
     Dates: start: 19670101, end: 20060124
  2. QUETIAPINE FUMARATE [Suspect]
     Dosage: 500MG PER DAY
     Route: 048
     Dates: end: 20060123
  3. VALPROIC ACID [Suspect]
     Dosage: 750MG TWICE PER DAY
     Route: 048
     Dates: start: 20020301, end: 20060124
  4. CEFTRIAXONE [Concomitant]
     Dosage: 2G PER DAY
     Route: 042
     Dates: start: 20050122, end: 20060127
  5. METRONIDAZOLE [Concomitant]
     Dosage: 500MG THREE TIMES PER DAY
     Route: 042
     Dates: start: 20060122, end: 20060127
  6. HEPARIN SODIUM [Concomitant]
     Indication: DRUG USE FOR UNKNOWN INDICATION
     Dosage: 5000IU THREE TIMES PER DAY
     Route: 065
     Dates: start: 20060124, end: 20060124

REACTIONS (6)
  - DEHYDRATION [None]
  - DEPRESSED LEVEL OF CONSCIOUSNESS [None]
  - DIABETES INSIPIDUS [None]
  - EXTRAPYRAMIDAL DISORDER [None]
  - HYPERNATRAEMIA [None]
  - PARKINSON'S DISEASE [None]
